FAERS Safety Report 5197569-9 (Version None)
Quarter: 2007Q1

REPORT INFORMATION
  Report Type: 
  Country: None (occurrence: None)
  Receive Date: 20070103
  Receipt Date: 20061222
  Transmission Date: 20070707
  Serious: Yes (Other)
  Sender: FDA-Public Use
  Company Number: GB-PFIZER INC-2006152246

PATIENT
  Sex: Female
  Weight: 60 kg

DRUGS (5)
  1. EPANUTIN [Suspect]
     Indication: CONVULSION
     Route: 048
  2. EPANUTIN [Suspect]
     Route: 051
  3. VALPROATE SODIUM [Concomitant]
     Indication: MOOD SWINGS
     Route: 048
  4. VALPROATE SODIUM [Concomitant]
  5. ANASTROZOLE [Concomitant]
     Indication: BREAST CANCER
     Route: 048

REACTIONS (6)
  - DRUG LEVEL BELOW THERAPEUTIC [None]
  - HAEMOGLOBIN DECREASED [None]
  - LYMPHOCYTE COUNT DECREASED [None]
  - PLATELET COUNT INCREASED [None]
  - RASH [None]
  - STAPHYLOCOCCAL SCALDED SKIN SYNDROME [None]
